FAERS Safety Report 8480891-8 (Version None)
Quarter: 2012Q2

REPORT INFORMATION
  Report Type: 
  Country: None (occurrence: None)
  Receive Date: 20120625
  Receipt Date: 20120611
  Transmission Date: 20120825
  Serious: Yes (Other)
  Sender: FDA-Public Use
  Company Number: 2012-002178

PATIENT
  Age: 64 Year
  Sex: Female

DRUGS (4)
  1. ALENDRONATE SODIUM [Suspect]
     Indication: OSTEOPOROSIS
     Dates: start: 20080101
  2. ACTONEL [Suspect]
     Indication: OSTEOPOROSIS
     Dosage: 35 MG ONCE WEEKLY, ORAL
     Route: 048
     Dates: start: 20060101, end: 20080101
  3. VITAMIN D 100318501/ (COLECALCIFEROL) [Concomitant]
  4. CALCIUM CARBONATE [Concomitant]

REACTIONS (7)
  - FEMUR FRACTURE [None]
  - BONE DISORDER [None]
  - ARTHRALGIA [None]
  - EXOSTOSIS [None]
  - FALL [None]
  - ATYPICAL FEMUR FRACTURE [None]
  - JOINT STIFFNESS [None]
